FAERS Safety Report 7887758-4 (Version None)
Quarter: 2011Q4

REPORT INFORMATION
  Report Type: 
  Country: None (occurrence: None)
  Receive Date: 20111101
  Receipt Date: 20111021
  Transmission Date: 20120403
  Serious: Yes (Hospitalization)
  Sender: FDA-Public Use
  Company Number: 2011S1000092

PATIENT
  Age: 77 Year
  Sex: Male

DRUGS (13)
  1. TYLENOL (CAPLET) [Concomitant]
  2. KRYSTEXXA [Suspect]
     Indication: GOUT
     Dosage: 8 MG;X1;IV
     Route: 042
     Dates: start: 20111006, end: 20111006
  3. HEPARIN [Concomitant]
  4. HYDROMORPHONE HCL [Concomitant]
  5. PREDNISONE [Concomitant]
  6. MORPHINE [Concomitant]
  7. CALCIUM [Concomitant]
  8. VANCOMYCIN [Concomitant]
  9. NYSTATIN [Concomitant]
  10. TRAZODONE HYDROCHLORIDE [Concomitant]
  11. NPH INSULIN [Concomitant]
  12. AMLODIPINE [Concomitant]
  13. DIGOXIN [Concomitant]

REACTIONS (1)
  - ILEUS [None]
